FAERS Safety Report 7936775-4 (Version None)
Quarter: 2011Q4

REPORT INFORMATION
  Report Type: 
  Country: None (occurrence: None)
  Receive Date: 20111123
  Receipt Date: 20111116
  Transmission Date: 20120403
  Serious: Yes (Other)
  Sender: FDA-Public Use
  Company Number: US-BAYER-2011-112425

PATIENT

DRUGS (1)
  1. AVELOX [Suspect]
     Dosage: 400/250ML ONE INJECTION
     Route: 042

REACTIONS (1)
  - INJECTION SITE ERYTHEMA [None]
